FAERS Safety Report 24737701 (Version 1)
Quarter: 2024Q4

REPORT INFORMATION
  Report Type: Spontaneous
  Country: FR (occurrence: FR)
  Receive Date: 20241216
  Receipt Date: 20241216
  Transmission Date: 20250114
  Serious: Yes (Hospitalization)
  Sender: TEVA
  Company Number: None

PATIENT
  Age: 48 Year
  Sex: Female
  Weight: 62.5 kg

DRUGS (9)
  1. ESOMEPRAZOLE [Suspect]
     Active Substance: ESOMEPRAZOLE
     Indication: Prophylaxis against gastrointestinal ulcer
     Dosage: DOSE: 1 AS NECESSARY
     Route: 048
     Dates: end: 20241028
  2. NAPROXEN [Suspect]
     Active Substance: NAPROXEN
     Indication: SAPHO syndrome
     Dosage: DOSE: 1 AS NECESSARY
     Route: 048
     Dates: end: 20241028
  3. PRAVASTATIN [Suspect]
     Active Substance: PRAVASTATIN
     Indication: Dyslipidaemia
     Dosage: PRAVASTATIN SODIUM
     Route: 048
     Dates: end: 202410
  4. ACETAMINOPHEN [Suspect]
     Active Substance: ACETAMINOPHEN
     Indication: Pain
     Route: 048
     Dates: end: 202410
  5. INFLIXIMAB [Suspect]
     Active Substance: INFLIXIMAB
     Indication: SAPHO syndrome
     Dosage: TIME INTERVAL: TOTAL: POWDER FOR SOLUTION FOR DILUTION FOR SOLUTION FOR INFUSION
     Route: 042
     Dates: start: 20240813, end: 20240813
  6. INFLIXIMAB [Suspect]
     Active Substance: INFLIXIMAB
     Indication: SAPHO syndrome
     Dosage: TIME INTERVAL: TOTAL: POWDER FOR SOLUTION FOR DILUTION FOR SOLUTION FOR INFUSION
     Route: 042
     Dates: start: 20240702, end: 20240702
  7. INFLIXIMAB [Suspect]
     Active Substance: INFLIXIMAB
     Indication: SAPHO syndrome
     Dosage: TIME INTERVAL: TOTAL: POWDER FOR SOLUTION FOR DILUTION FOR SOLUTION FOR INFUSION
     Route: 042
     Dates: start: 20240716, end: 20240716
  8. INFLIXIMAB [Suspect]
     Active Substance: INFLIXIMAB
     Indication: SAPHO syndrome
     Dosage: TIME INTERVAL: TOTAL: POWDER FOR SOLUTION FOR DILUTION FOR SOLUTION FOR INFUSION
     Route: 042
     Dates: start: 20240927, end: 20240927
  9. VALACYCLOVIR HYDROCHLORIDE [Suspect]
     Active Substance: VALACYCLOVIR HYDROCHLORIDE
     Indication: Genital herpes
     Dosage: VALACICLOVIR HYDROCHLORIDE
     Route: 048
     Dates: start: 202409, end: 202409

REACTIONS (1)
  - Hepatocellular injury [Not Recovered/Not Resolved]

NARRATIVE: CASE EVENT DATE: 20240925
